FAERS Safety Report 8339051-3 (Version None)
Quarter: 2012Q2

REPORT INFORMATION
  Report Type: 
  Country: None (occurrence: None)
  Receive Date: 20120502
  Receipt Date: 20120430
  Transmission Date: 20120825
  Serious: Yes (Death)
  Sender: FDA-Public Use
  Company Number: ADR-2011-11627

PATIENT
  Age: 40 Year
  Sex: Female

DRUGS (5)
  1. BACLOFEN [Suspect]
     Indication: PAIN
     Dosage: 329.73 MCG/DAY, INTRATHECAL
     Route: 037
  2. BACLOFEN [Suspect]
     Indication: BREAST DISORDER
     Dosage: 329.73 MCG/DAY, INTRATHECAL
     Route: 037
  3. DILAUDID [Concomitant]
  4. BUPIVACAINE HCL [Concomitant]
  5. CLONIDINE [Concomitant]

REACTIONS (1)
  - BREAST CANCER METASTATIC [None]
